FAERS Safety Report 26133636 (Version 1)
Quarter: 2025Q4

REPORT INFORMATION
  Report Type: Spontaneous
  Country: JP (occurrence: JP)
  Receive Date: 20251209
  Receipt Date: 20251209
  Transmission Date: 20260117
  Serious: Yes (Hospitalization, Other)
  Sender: ALKEM
  Company Number: None

PATIENT
  Age: 69 Year
  Sex: Male
  Weight: 58 kg

DRUGS (7)
  1. LINEZOLID [Suspect]
     Active Substance: LINEZOLID
     Indication: Endocarditis staphylococcal
     Dosage: 1200 MILLIGRAM, QD (ON DAY12)
     Route: 065
  2. LINEZOLID [Suspect]
     Active Substance: LINEZOLID
     Dosage: 900 MILLIGRAM, QD
     Route: 065
  3. LINEZOLID [Suspect]
     Active Substance: LINEZOLID
     Dosage: 600 MILLIGRAM, QD
     Route: 065
  4. LINEZOLID [Suspect]
     Active Substance: LINEZOLID
     Dosage: 600 MILLIGRAM, QD (RE CHALLENGE DOSE)
     Route: 065
  5. VANCOMYCIN [Suspect]
     Active Substance: VANCOMYCIN
     Indication: Endocarditis staphylococcal
     Dosage: UNK
     Route: 065
  6. GENTAMICIN [Concomitant]
     Active Substance: GENTAMICIN
     Indication: Endocarditis staphylococcal
     Dosage: 180 UNK, QD
     Route: 065
  7. RIFAMPIN [Concomitant]
     Active Substance: RIFAMPIN
     Indication: Endocarditis staphylococcal
     Dosage: 600 MILLIGRAM, QD
     Route: 065

REACTIONS (3)
  - Thrombocytopenia [Recovered/Resolved]
  - Rash [Unknown]
  - Pyrexia [Unknown]
